FAERS Safety Report 15466891 (Version 1)
Quarter: 2018Q4

REPORT INFORMATION
  Report Type: Report from Study
  Country: ES (occurrence: ES)
  Receive Date: 20181005
  Receipt Date: 20181005
  Transmission Date: 20190204
  Serious: Yes (Hospitalization, Other)
  Sender: FDA-Public Use
  Company Number: ES-TEVA-2018-ES-961043

PATIENT
  Age: 91 Year
  Sex: Female

DRUGS (7)
  1. TARDYFERON [Concomitant]
     Active Substance: FERROUS SULFATE
     Dosage: 1-0-0
     Route: 048
  2. AMERIDE 5/50 [Interacting]
     Active Substance: AMILORIDE HYDROCHLORIDE\HYDROCHLOROTHIAZIDE
     Indication: HYPERTENSION
     Dosage: 1 DOSAGE FORMS DAILY; 1-0-0
     Route: 048
     Dates: start: 1999, end: 20170921
  3. SINTROM 4 MG COMPRIMIDOS [Concomitant]
     Active Substance: ACENOCOUMAROL
     Indication: ATRIAL FIBRILLATION
     Dosage: HALF DAILY, DOMIGOS 3/4
     Route: 048
  4. PROMETAX 4,6 [Concomitant]
     Dosage: 1 DOSAGE FORMS DAILY; A DAILY PATCH
     Route: 062
  5. SINERGINA 100 [Concomitant]
     Active Substance: PHENYTOIN
     Dosage: 1-0-1
     Route: 048
  6. QUETIAPINA 50 [Concomitant]
     Active Substance: QUETIAPINE
     Dosage: 1-1-1
     Route: 048
  7. LISINOPRIL 20 MG COMPRIMIDO [Suspect]
     Active Substance: LISINOPRIL
     Indication: HYPERTENSION
     Dosage: 1/2-0-0
     Route: 048
     Dates: start: 2009, end: 20170921

REACTIONS (5)
  - Drug interaction [Unknown]
  - Acute kidney injury [Recovered/Resolved]
  - Hypotension [Recovered/Resolved]
  - Hyperkalaemia [Recovered/Resolved]
  - Hyponatraemia [Recovering/Resolving]

NARRATIVE: CASE EVENT DATE: 2017
